FAERS Safety Report 10823381 (Version 1)
Quarter: 2015Q1

REPORT INFORMATION
  Report Type: Spontaneous
  Country: US (occurrence: None)
  Receive Date: 20150218
  Receipt Date: 20150218
  Transmission Date: 20150721
  Serious: Yes (Other)
  Sender: FDA-Public Use
  Company Number: None

PATIENT
  Age: 54 Year
  Sex: Male
  Weight: 97 kg

DRUGS (1)
  1. PNEUMOVAX 23 [Suspect]
     Active Substance: PNEUMOCOCCAL VACCINE, POLYVALENT 23
     Indication: PNEUMOCOCCAL IMMUNISATION
     Dates: start: 20150210

REACTIONS (4)
  - Injection site abscess [None]
  - Chills [None]
  - Pyrexia [None]
  - Injection site cellulitis [None]

NARRATIVE: CASE EVENT DATE: 20150210
